FAERS Safety Report 17215737 (Version 1)
Quarter: 2019Q4

REPORT INFORMATION
  Report Type: Spontaneous
  Country: FR (occurrence: FR)
  Receive Date: 20191230
  Receipt Date: 20191230
  Transmission Date: 20200122
  Serious: Yes (Other)
  Sender: FDA-Public Use
  Company Number: FR-MYLANLABS-2019M1130254

PATIENT
  Age: 67 Year
  Sex: Male
  Weight: 102 kg

DRUGS (4)
  1. PROPOFOL. [Suspect]
     Active Substance: PROPOFOL
     Indication: SEDATION
     Dosage: UNK
     Route: 041
     Dates: start: 20191029, end: 20191103
  2. RIFADINE                           /00146902/ [Suspect]
     Active Substance: RIFAMPIN SODIUM
     Indication: ENDOCARDITIS
     Dosage: 1200 MILLIGRAM, QD
     Route: 042
     Dates: start: 20191030, end: 20191102
  3. TERBUTALINE ARROW [Concomitant]
     Active Substance: TERBUTALINE
     Dosage: UNK
     Route: 055
     Dates: start: 20191030
  4. OMEPRAZOLE MYLAN 40 MG, POUDRE POUR SOLUTION POUR PERFUSION [Suspect]
     Active Substance: OMEPRAZOLE
     Indication: PROPHYLAXIS
     Dosage: 40 MILLIGRAM, QD
     Route: 042
     Dates: start: 20191029, end: 20191103

REACTIONS (1)
  - Hepatocellular injury [Not Recovered/Not Resolved]

NARRATIVE: CASE EVENT DATE: 20191102
